FAERS Safety Report 15082101 (Version 1)
Quarter: 2018Q2

REPORT INFORMATION
  Report Type: Spontaneous
  Country: US (occurrence: US)
  Receive Date: 20180607
  Receipt Date: 20180607
  Transmission Date: 20180711
  Serious: Yes (Other)
  Sender: FDA-Public Use
  Company Number: None

PATIENT
  Age: 79 Year
  Sex: Female

DRUGS (15)
  1. ESBRIET [Suspect]
     Active Substance: PIRFENIDONE
     Indication: IDIOPATHIC PULMONARY FIBROSIS
     Route: 048
     Dates: start: 20160916, end: 20180606
  2. ROPINIROLE. [Concomitant]
     Active Substance: ROPINIROLE
  3. WARFARIN [Concomitant]
     Active Substance: WARFARIN
  4. GABAPENTIN. [Concomitant]
     Active Substance: GABAPENTIN
  5. LEVOTHYROXIN [Concomitant]
     Active Substance: LEVOTHYROXINE
  6. FUROSEMIDE. [Concomitant]
     Active Substance: FUROSEMIDE
  7. LATANOPROST. [Concomitant]
     Active Substance: LATANOPROST
  8. DIGOX [Concomitant]
     Active Substance: DIGOXIN
  9. POTASSIUM CHLORIDE. [Concomitant]
     Active Substance: POTASSIUM CHLORIDE
  10. GEMFIBROZIL. [Concomitant]
     Active Substance: GEMFIBROZIL
  11. PREDNISONE. [Concomitant]
     Active Substance: PREDNISONE
  12. THEOPHYLLINE [Concomitant]
     Active Substance: THEOPHYLLINE ANHYDROUS
  13. VITAMIN D [Concomitant]
     Active Substance: CHOLECALCIFEROL
  14. PANTOPRAZOLE [Concomitant]
     Active Substance: PANTOPRAZOLE
  15. TRAMADOL. [Concomitant]
     Active Substance: TRAMADOL

REACTIONS (3)
  - Dizziness [None]
  - Asthenia [None]
  - Tremor [None]

NARRATIVE: CASE EVENT DATE: 201805
